FAERS Safety Report 4480852-X (Version None)
Quarter: 2004Q4

REPORT INFORMATION
  Report Type: 
  Country: None (occurrence: None)
  Receive Date: 20041021
  Receipt Date: 20041011
  Transmission Date: 20050328
  Serious: Yes (Other)
  Sender: FDA-Public Use
  Company Number: NZ-ABBOTT-04P-118-0277061-00

PATIENT
  Age: 35 Year
  Sex: Female

DRUGS (10)
  1. ULTANE LIQUID FOR INHALATION [Suspect]
     Indication: MAINTENANCE OF ANAESTHESIA
  2. ULTIVA [Suspect]
     Indication: INDUCTION OF ANAESTHESIA
  3. MIDAZOLAM [Suspect]
     Indication: INDUCTION OF ANAESTHESIA
  4. PROPOFOL [Suspect]
     Indication: INDUCTION OF ANAESTHESIA
  5. ROCURONIUM [Suspect]
     Indication: INDUCTION OF ANAESTHESIA
  6. CEFAZOLIN [Suspect]
     Indication: DRUG USE FOR UNKNOWN INDICATION
  7. RANITIDINE [Concomitant]
     Indication: PREMEDICATION
  8. TEMAZEPAM [Concomitant]
     Indication: PREMEDICATION
  9. METOCLOPRAMIDE [Concomitant]
     Indication: PREMEDICATION
  10. OXYGEN [Concomitant]
     Indication: INDUCTION OF ANAESTHESIA
     Route: 055

REACTIONS (3)
  - ANAPHYLACTIC REACTION [None]
  - FIBRINOLYSIS [None]
  - HEART RATE INCREASED [None]
